FAERS Safety Report 6146665-8 (Version None)
Quarter: 2009Q2

REPORT INFORMATION
  Report Type: 
  Country: None (occurrence: None)
  Receive Date: 20090407
  Receipt Date: 20090330
  Transmission Date: 20091009
  Serious: Yes (Other)
  Sender: FDA-Public Use
  Company Number: US-ELI_LILLY_AND_COMPANY-US200903007682

PATIENT
  Sex: Female

DRUGS (1)
  1. HUMULIN N [Suspect]
     Route: 023
     Dates: start: 19990101

REACTIONS (7)
  - BLINDNESS [None]
  - DIABETIC RETINOPATHY [None]
  - FEELING ABNORMAL [None]
  - INCORRECT ROUTE OF DRUG ADMINISTRATION [None]
  - INJECTION SITE PAIN [None]
  - INJECTION SITE URTICARIA [None]
  - MENTAL IMPAIRMENT [None]
